FAERS Safety Report 7769344-X (Version None)
Quarter: 2011Q3

REPORT INFORMATION
  Report Type: 
  Country: None (occurrence: None)
  Receive Date: 20110922
  Receipt Date: 20110919
  Transmission Date: 20111222
  Serious: Yes (Other)
  Sender: FDA-Public Use
  Company Number: US-PFIZER INC-2011222091

PATIENT
  Sex: Female

DRUGS (1)
  1. PREMARIN [Suspect]
     Dosage: UNK

REACTIONS (5)
  - PRURITUS [None]
  - PAIN IN EXTREMITY [None]
  - BLOOD PRESSURE INCREASED [None]
  - RASH [None]
  - BURNING SENSATION [None]
